FAERS Safety Report 10788694 (Version 2)
Quarter: 2015Q1

REPORT INFORMATION
  Report Type: Other
  Country: US (occurrence: US)
  Receive Date: 20150212
  Receipt Date: 20150302
  Transmission Date: 20150721
  Serious: Yes (Death, Hospitalization, Other)
  Sender: FDA-Public Use
  Company Number: US-UNITED THERAPEUTICS-UNT-2015-001390

PATIENT
  Age: 67 Year
  Sex: Male
  Weight: 68.93 kg

DRUGS (1)
  1. TYVASO [Suspect]
     Active Substance: TREPROSTINIL
     Indication: PULMONARY ARTERIAL HYPERTENSION
     Dosage: 18-54 ?G, QID
     Dates: start: 20141106, end: 20141224

REACTIONS (24)
  - Renal failure [Fatal]
  - Ventricular tachycardia [Fatal]
  - Coagulopathy [Fatal]
  - Hepatorenal syndrome [Fatal]
  - Thrombocytopenia [Fatal]
  - Hypoglycaemia [Fatal]
  - Hepatic enzyme increased [Fatal]
  - Liver disorder [Fatal]
  - Anaemia [Fatal]
  - Ascites [Fatal]
  - Hypotension [Fatal]
  - Ammonia increased [Fatal]
  - Epistaxis [Fatal]
  - Seizure [Fatal]
  - Fluid overload [Fatal]
  - Dyspnoea [Fatal]
  - Respiratory failure [Fatal]
  - Nodal rhythm [Fatal]
  - Respiratory distress [Fatal]
  - Right ventricular failure [Fatal]
  - Pulmonary congestion [Fatal]
  - Hyperkalaemia [Fatal]
  - Pyrexia [Fatal]
  - Sinusitis [Fatal]

NARRATIVE: CASE EVENT DATE: 201412
